FAERS Safety Report 6564462-6 (Version None)
Quarter: 2010Q1

REPORT INFORMATION
  Report Type: 
  Country: None (occurrence: None)
  Receive Date: 20100201
  Receipt Date: 20091231
  Transmission Date: 20100710
  Serious: No
  Sender: FDA-Public Use
  Company Number: US-BAYER-200939543NA

PATIENT
  Age: 56 Year
  Sex: Female
  Weight: 64 kg

DRUGS (9)
  1. AVELOX [Suspect]
     Indication: PNEUMONIA
     Dosage: TOTAL DAILY DOSE: 400 MG  UNIT DOSE: 400 MG
     Dates: start: 20091106, end: 20091113
  2. INDERAL [Concomitant]
  3. FIBERCON [Concomitant]
     Indication: IRRITABLE BOWEL SYNDROME
  4. CENTRUM CARDIO [Concomitant]
  5. FOLIC ACID [Concomitant]
     Indication: BLOOD HOMOCYSTEINE INCREASED
  6. ACIDOPHILUS [Concomitant]
  7. CALTRATE + D [Concomitant]
     Dosage: 600
  8. FLAXSEED OIL [Concomitant]
  9. GLUCOSAMINE [Concomitant]

REACTIONS (1)
  - CHROMATURIA [None]
